FAERS Safety Report 15136595 (Version 3)
Quarter: 2019Q1

REPORT INFORMATION
  Report Type: Report from Study
  Country: BR (occurrence: BR)
  Receive Date: 20180712
  Receipt Date: 20190222
  Transmission Date: 20190417
  Serious: Yes (Other)
  Sender: FDA-Public Use
  Company Number: BR-BAYER-2018-126966

PATIENT
  Age: 77 Year
  Sex: Female

DRUGS (8)
  1. INDAPAMIDE. [Concomitant]
     Active Substance: INDAPAMIDE
     Indication: HYPERTENSION
     Dosage: 1.5 MG, QD
     Route: 048
  2. NEXAVAR [Suspect]
     Active Substance: SORAFENIB
     Indication: HEPATOCELLULAR CARCINOMA
     Dosage: 400 G
  3. TIMOLOL. [Concomitant]
     Active Substance: TIMOLOL
     Indication: GLAUCOMA
     Dosage: TWICE A DAY
  4. NEXAVAR [Suspect]
     Active Substance: SORAFENIB
     Indication: HEPATOCELLULAR CARCINOMA
     Dosage: 200 MG, QD
  5. TRAVATAN [Concomitant]
     Active Substance: TRAVOPROST
     Indication: GLAUCOMA
     Dosage: UNK
  6. CHAMOMILE [MATRICARIA RECUTITA] [Concomitant]
     Dosage: UNK
  7. SIMVASTATIN. [Concomitant]
     Active Substance: SIMVASTATIN
     Dosage: 40 MG, QD
     Route: 048
  8. NEXAVAR [Suspect]
     Active Substance: SORAFENIB
     Indication: HEPATOCELLULAR CARCINOMA
     Dosage: 400 MG, BID
     Route: 048
     Dates: start: 20180620

REACTIONS (15)
  - Pain in extremity [Not Recovered/Not Resolved]
  - Feeling hot [Recovering/Resolving]
  - Erythema [Not Recovered/Not Resolved]
  - Mass [Not Recovered/Not Resolved]
  - Skin hypertrophy [Recovering/Resolving]
  - Visual impairment [Not Recovered/Not Resolved]
  - Fall [Not Recovered/Not Resolved]
  - Diarrhoea [None]
  - Limb mass [Not Recovered/Not Resolved]
  - Mass [Recovering/Resolving]
  - Weight decreased [Not Recovered/Not Resolved]
  - Pruritus [Not Recovered/Not Resolved]
  - Miliaria [Recovering/Resolving]
  - Pruritus [Recovering/Resolving]
  - Feeling abnormal [Recovering/Resolving]

NARRATIVE: CASE EVENT DATE: 20180623
